FAERS Safety Report 4587965-2 (Version None)
Quarter: 2005Q1

REPORT INFORMATION
  Report Type: 
  Country: None (occurrence: None)
  Receive Date: 20050215
  Receipt Date: 20050131
  Transmission Date: 20050727
  Serious: Yes (Hospitalization)
  Sender: FDA-Public Use
  Company Number: GXKR2005FR00548

PATIENT
  Age: 27 Year
  Sex: Male
  Weight: 62 kg

DRUGS (2)
  1. AMOXICILLIN [Suspect]
     Indication: LOCALISED INFECTION
     Dosage: 1000 MG
     Dates: start: 20011016, end: 20011019
  2. ACETAMINOPHEN [Suspect]
     Indication: PYREXIA
     Dates: start: 20011014, end: 20011023

REACTIONS (2)
  - DRUG INTERACTION [None]
  - HEPATITIS ACUTE [None]
